FAERS Safety Report 12547073 (Version 1)
Quarter: 2016Q3

REPORT INFORMATION
  Report Type: Spontaneous
  Country: CN (occurrence: CN)
  Receive Date: 20160711
  Receipt Date: 20160711
  Transmission Date: 20161109
  Serious: Yes (Other)
  Sender: FDA-Public Use
  Company Number: CN-PFIZER INC-2016228741

PATIENT

DRUGS (1)
  1. XYNTHA [Suspect]
     Active Substance: ANTIHEMOPHILIC FACTOR, HUMAN RECOMBINANT RESIDUES 743-1636 DELETED
     Indication: HAEMATOMA
     Dosage: UNK
     Dates: start: 201602

REACTIONS (2)
  - Osteonecrosis [Unknown]
  - Drug ineffective [Unknown]
